FAERS Safety Report 14915911 (Version 3)
Quarter: 2018Q3

REPORT INFORMATION
  Report Type: Spontaneous
  Country: AU (occurrence: AU)
  Receive Date: 20180518
  Receipt Date: 20180702
  Transmission Date: 20181010
  Serious: Yes (Hospitalization, Other)
  Sender: FDA-Public Use
  Company Number: AU-BEH-2018090787

PATIENT
  Age: 79 Year
  Sex: Female
  Weight: 68 kg

DRUGS (1)
  1. PRIVIGEN [Suspect]
     Active Substance: HUMAN IMMUNOGLOBULIN G
     Indication: HYPOGAMMAGLOBULINAEMIA
     Dosage: 25 G, 4 WEEKLY
     Route: 042
     Dates: start: 20180517, end: 20180517

REACTIONS (5)
  - Hypertension [Unknown]
  - Back pain [Unknown]
  - Urticaria [Unknown]
  - Cardiac flutter [Unknown]
  - Hypersensitivity [Unknown]
